FAERS Safety Report 5071862-2 (Version None)
Quarter: 2006Q3

REPORT INFORMATION
  Report Type: 
  Country: None (occurrence: None)
  Receive Date: 20060801
  Receipt Date: 20060728
  Transmission Date: 20061208
  Serious: Yes (Death)
  Sender: FDA-Public Use
  Company Number: 146801USA

PATIENT
  Sex: Male

DRUGS (1)
  1. PIMOZIDE [Suspect]
     Dosage: ORAL
     Route: 048

REACTIONS (3)
  - FALL [None]
  - NEUROLEPTIC MALIGNANT SYNDROME [None]
  - PNEUMONIA [None]
